FAERS Safety Report 19609620 (Version 1)
Quarter: 2021Q3

REPORT INFORMATION
  Report Type: Spontaneous
  Country: US (occurrence: US)
  Receive Date: 20210722
  Receipt Date: 20210722
  Transmission Date: 20211014
  Serious: Yes (Hospitalization)
  Sender: FDA-Public Use
  Company Number: None

PATIENT
  Age: 70 Year
  Sex: Female
  Weight: 73.9 kg

DRUGS (2)
  1. NITROFURANTOIN. [Concomitant]
     Active Substance: NITROFURANTOIN
  2. TEMOZOLOMIDE. [Suspect]
     Active Substance: TEMOZOLOMIDE
     Dates: end: 20210412

REACTIONS (8)
  - Haemoglobin decreased [None]
  - Enterocolitis [None]
  - Deep vein thrombosis [None]
  - Urinary tract infection [None]
  - Fluid intake reduced [None]
  - Decreased appetite [None]
  - Pollakiuria [None]
  - Liver function test increased [None]

NARRATIVE: CASE EVENT DATE: 20210427
